FAERS Safety Report 6763807-1 (Version None)
Quarter: 2010Q2

REPORT INFORMATION
  Report Type: 
  Country: None (occurrence: None)
  Receive Date: 20100610
  Receipt Date: 20100602
  Transmission Date: 20101027
  Serious: Yes (Other)
  Sender: FDA-Public Use
  Company Number: US-ROCHE-708105

PATIENT
  Sex: Male

DRUGS (2)
  1. AVASTIN [Suspect]
     Indication: COLORECTAL CANCER
     Route: 065
  2. FOLFOX REGIMEN [Suspect]
     Indication: COLORECTAL CANCER
     Dosage: DRUG REPORTED AS; FOLFOX
     Route: 065

REACTIONS (1)
  - STENT PLACEMENT [None]
